FAERS Safety Report 6627694-4 (Version None)
Quarter: 2010Q1

REPORT INFORMATION
  Report Type: 
  Country: None (occurrence: None)
  Receive Date: 20100311
  Receipt Date: 20100301
  Transmission Date: 20100710
  Serious: Yes (Hospitalization)
  Sender: FDA-Public Use
  Company Number: US-BRISTOL-MYERS SQUIBB COMPANY-14996052

PATIENT
  Age: 65 Year
  Sex: Male
  Weight: 101 kg

DRUGS (23)
  1. ORENCIA [Suspect]
     Indication: RHEUMATOID ARTHRITIS
  2. METHOTREXATE [Concomitant]
  3. LEFLUNOMIDE [Concomitant]
  4. VICODIN [Concomitant]
     Dosage: 1 DF : 7.5MG/750MG Q4
  5. VITAMIN C [Concomitant]
  6. ASPIRIN [Concomitant]
  7. LIPITOR [Concomitant]
  8. OSCAL D [Concomitant]
  9. NEXIUM [Concomitant]
  10. ZETIA [Concomitant]
  11. FELODIPINE [Concomitant]
  12. FOLIC ACID [Concomitant]
  13. GABAPENTIN [Concomitant]
  14. HYDROCHLOROTHIAZIDE [Concomitant]
  15. METFORMIN HYDROCHLORIDE [Concomitant]
  16. MINOCYCLINE HCL [Concomitant]
  17. MULTI-VITAMIN [Concomitant]
  18. FISH OIL [Concomitant]
  19. PREDNISONE [Concomitant]
  20. SERTRALINE HCL [Concomitant]
  21. FLOMAX [Concomitant]
  22. RESTORIL [Concomitant]
     Dosage: DOSE : HS
  23. TRIAMTERENE [Concomitant]

REACTIONS (1)
  - ACUTE RESPIRATORY FAILURE [None]
